FAERS Safety Report 8091081-5 (Version None)
Quarter: 2012Q1

REPORT INFORMATION
  Report Type: 
  Country: None (occurrence: None)
  Receive Date: 20120129
  Receipt Date: 20111020
  Transmission Date: 20120608
  Serious: No
  Sender: FDA-Public Use
  Company Number: US-ABBOTT-11P-163-0867009-00

PATIENT
  Age: 66 Year
  Sex: Male

DRUGS (10)
  1. LISINOPRIL [Concomitant]
     Indication: BLOOD PRESSURE
  2. ALDACTONE [Concomitant]
     Indication: CARDIAC DISORDER
  3. TOPROL-XL [Concomitant]
     Indication: BLOOD PRESSURE
  4. METHYLPREDNISOLONE ACETATE [Concomitant]
     Indication: ARTHRITIS
  5. HUMIRA [Suspect]
     Indication: CROHN'S DISEASE
     Dates: start: 20110407
  6. AMITRIPTYLINE HCL [Concomitant]
     Indication: PAIN
  7. AMITRIPTYLINE HCL [Concomitant]
     Indication: ARTHRITIS
  8. NIASPAN [Concomitant]
     Indication: CARDIAC DISORDER
  9. CRESTOR [Concomitant]
     Indication: CARDIAC DISORDER
  10. PANTOPRAZOLE [Concomitant]
     Indication: DYSKINESIA OESOPHAGEAL

REACTIONS (2)
  - INJECTION SITE HAEMORRHAGE [None]
  - INJECTION SITE PAIN [None]
